FAERS Safety Report 25077649 (Version 1)
Quarter: 2025Q1

REPORT INFORMATION
  Report Type: Spontaneous
  Country: FR (occurrence: FR)
  Receive Date: 20250314
  Receipt Date: 20250314
  Transmission Date: 20250409
  Serious: Yes (Life-Threatening)
  Sender: TEVA
  Company Number: None

PATIENT
  Age: 57 Year
  Sex: Female
  Weight: 55 kg

DRUGS (8)
  1. MIRTAZAPINE [Suspect]
     Active Substance: MIRTAZAPINE
     Indication: Suicide attempt
     Route: 048
     Dates: start: 20250217, end: 20250217
  2. DIAZEPAM [Suspect]
     Active Substance: DIAZEPAM
     Indication: Suicide attempt
     Route: 048
     Dates: start: 20250217, end: 20250217
  3. CYAMEMAZINE [Suspect]
     Active Substance: CYAMEMAZINE
     Indication: Suicide attempt
     Route: 048
     Dates: start: 20250217, end: 20250217
  4. OXAZEPAM [Suspect]
     Active Substance: OXAZEPAM
     Indication: Suicide attempt
     Route: 048
     Dates: start: 20250217, end: 20250217
  5. METOCLOPRAMIDE HYDROCHLORIDE [Suspect]
     Active Substance: METOCLOPRAMIDE HYDROCHLORIDE
     Indication: Suicide attempt
     Route: 048
     Dates: start: 20250217, end: 20250217
  6. TERALITHE [Suspect]
     Active Substance: LITHIUM CARBONATE
     Indication: Suicide attempt
     Route: 048
     Dates: start: 20250217, end: 20250217
  7. PROMETHAZINE [Suspect]
     Active Substance: PROMETHAZINE HYDROCHLORIDE
     Indication: Suicide attempt
     Route: 048
     Dates: start: 20250217, end: 20250217
  8. BUPRENORPHINE [Suspect]
     Active Substance: BUPRENORPHINE
     Indication: Suicide attempt
     Route: 048
     Dates: start: 20250217, end: 20250217

REACTIONS (4)
  - Poisoning deliberate [Unknown]
  - Acute respiratory distress syndrome [Not Recovered/Not Resolved]
  - Coma [Not Recovered/Not Resolved]
  - Shock [Not Recovered/Not Resolved]

NARRATIVE: CASE EVENT DATE: 20250217
